FAERS Safety Report 8796479 (Version 2)
Quarter: 2012Q4

REPORT INFORMATION
  Report Type: 
  Country: IT (occurrence: IT)
  Receive Date: 20120919
  Receipt Date: 20121003
  Transmission Date: 20130627
  Serious: Yes (Hospitalization)
  Sender: FDA-Public Use
  Company Number: IT-ASTRAZENECA-2012SE70726

PATIENT
  Age: 13013 Day
  Sex: Female

DRUGS (2)
  1. SEROQUEL [Suspect]
     Indication: INTENTIONAL OVERDOSE
     Dosage: 15 DOSAGE FORM ONCE
     Route: 048
     Dates: start: 20120815, end: 20120815
  2. OLANZAPINE [Concomitant]
     Indication: PSYCHOTIC DISORDER

REACTIONS (4)
  - Intentional overdose [Recovered/Resolved]
  - Bradyphrenia [Recovered/Resolved]
  - Confusional state [Recovered/Resolved]
  - Sinus tachycardia [Recovered/Resolved]
